FAERS Safety Report 16348243 (Version 1)
Quarter: 2019Q2

REPORT INFORMATION
  Report Type: Spontaneous
  Country: JP (occurrence: JP)
  Receive Date: 20190523
  Receipt Date: 20190523
  Transmission Date: 20190711
  Serious: Yes (Other)
  Sender: FDA-Public Use
  Company Number: JP-MYE-2019M1047001AA

PATIENT
  Age: 60 Year
  Sex: Female

DRUGS (1)
  1. KLARICID TABLETS 200MG [Suspect]
     Active Substance: CLARITHROMYCIN
     Indication: PYREXIA
     Dosage: UNK
     Route: 048
     Dates: start: 20181031, end: 20181105

REACTIONS (2)
  - Erythema multiforme [Recovering/Resolving]
  - Toxic skin eruption [Recovering/Resolving]

NARRATIVE: CASE EVENT DATE: 20181106
